FAERS Safety Report 20056548 (Version 3)
Quarter: 2022Q1

REPORT INFORMATION
  Report Type: Report from Study
  Country: PH (occurrence: PH)
  Receive Date: 20211111
  Receipt Date: 20220316
  Transmission Date: 20220423
  Serious: Yes (Other)
  Sender: FDA-Public Use
  Company Number: PH-NOVARTISPH-NVSC2021PH226171

PATIENT
  Age: 51 Year
  Sex: Female
  Weight: 86.18 kg

DRUGS (2)
  1. ALPELISIB [Suspect]
     Active Substance: ALPELISIB
     Indication: Breast cancer
     Dosage: 300 MG, QD
     Route: 048
     Dates: start: 20210731
  2. ALPELISIB [Suspect]
     Active Substance: ALPELISIB
     Dosage: 250 MG, QD
     Route: 048
     Dates: start: 20210901, end: 20210923

REACTIONS (10)
  - Malaise [Recovering/Resolving]
  - Dysphagia [Recovering/Resolving]
  - Hyperphagia [Recovered/Resolved]
  - Hyperglycaemia [Not Recovered/Not Resolved]
  - Blood glucose increased [Recovered/Resolved with Sequelae]
  - Nausea [Recovering/Resolving]
  - Dry mouth [Recovering/Resolving]
  - Glycosylated haemoglobin increased [Recovering/Resolving]
  - Fatigue [Recovered/Resolved]
  - Weight decreased [Not Recovered/Not Resolved]

NARRATIVE: CASE EVENT DATE: 20210803
